FAERS Safety Report 11420653 (Version 1)
Quarter: 2015Q3

REPORT INFORMATION
  Report Type: Spontaneous
  Country: US (occurrence: US)
  Receive Date: 20150826
  Receipt Date: 20150826
  Transmission Date: 20151125
  Serious: Yes (Death)
  Sender: FDA-Public Use
  Company Number: US-ASTRAZENECA-2015SE80268

PATIENT

DRUGS (2)
  1. INTEGRILIN [Concomitant]
     Active Substance: EPTIFIBATIDE
     Dosage: LOADING DOSE
  2. BRILINTA [Suspect]
     Active Substance: TICAGRELOR
     Route: 048

REACTIONS (2)
  - Procedural complication [Fatal]
  - Haemorrhage [Fatal]
